FAERS Safety Report 14820559 (Version 1)
Quarter: 2018Q2

REPORT INFORMATION
  Report Type: Spontaneous
  Country: US (occurrence: US)
  Receive Date: 20180427
  Receipt Date: 20180427
  Transmission Date: 20180711
  Serious: Yes (Hospitalization)
  Sender: FDA-Public Use
  Company Number: US-MYLANLABS-2018M1026637

PATIENT
  Age: 69 Year
  Sex: Male
  Weight: 78 kg

DRUGS (4)
  1. VANCOMYCIN [Suspect]
     Active Substance: VANCOMYCIN
     Indication: PROPIONIBACTERIUM INFECTION
     Dosage: 1000MG; MULTIPLE INFUSIONS DURING THE COURSE OF TWO WEEKS
     Route: 050
  2. DOXYCYCLINE. [Concomitant]
     Active Substance: DOXYCYCLINE
     Indication: PROPIONIBACTERIUM INFECTION
     Dosage: 60 DAYS COURSE WAS PRESCRIBED
     Route: 065
  3. VANCOMYCIN [Suspect]
     Active Substance: VANCOMYCIN
     Dosage: VANCOMYCIN-IMPREGNATED BONE CEMENT SPACER
     Route: 050
  4. VANCOMYCIN [Suspect]
     Active Substance: VANCOMYCIN
     Dosage: STARTING ON POSTOPERATIVE DAY 1
     Route: 051

REACTIONS (1)
  - Drug eruption [Recovered/Resolved]
